FAERS Safety Report 14906552 (Version 1)
Quarter: 2018Q2

REPORT INFORMATION
  Report Type: Report from Study
  Country: DE (occurrence: DE)
  Receive Date: 20180517
  Receipt Date: 20180517
  Transmission Date: 20180711
  Serious: Yes (Hospitalization, Other)
  Sender: FDA-Public Use
  Company Number: DE-TEVA-2018-DE-893359

PATIENT
  Age: 61 Year
  Sex: Female
  Weight: 85 kg

DRUGS (9)
  1. FUROSEMIDE. [Concomitant]
     Active Substance: FUROSEMIDE
     Route: 065
     Dates: start: 2008
  2. RAMIPRIL. [Concomitant]
     Active Substance: RAMIPRIL
     Route: 065
     Dates: start: 2008
  3. TRANSTEC PRO [Concomitant]
     Active Substance: BUPRENORPHINE
     Indication: SPINAL PAIN
     Dosage: DAILY DOSE: 52.5 ?G MICROGRAM(S) EVERY 3 DAYS
     Route: 062
  4. PACLITAXEL. [Suspect]
     Active Substance: PACLITAXEL
     Indication: BREAST CANCER METASTATIC
     Dosage: 850MG
     Route: 042
     Dates: start: 20100810, end: 20110126
  5. MCP [Concomitant]
     Active Substance: METOCLOPRAMIDE HYDROCHLORIDE
     Indication: SPINAL PAIN
     Route: 048
  6. L-THYROXIN [Concomitant]
     Active Substance: LEVOTHYROXINE SODIUM
     Indication: HYPOTHYROIDISM
     Dosage: 50 MILLIGRAM DAILY; DAILY DOSE: 50 MG MILLGRAM(S) EVERY DAYS
     Route: 048
  7. ZOLEDRONATE [Concomitant]
     Active Substance: ZOLEDRONIC ACID
     Indication: BREAST CANCER METASTATIC
     Route: 042
     Dates: start: 20100818
  8. BEVACIZUMAB. [Suspect]
     Active Substance: BEVACIZUMAB
     Route: 042
     Dates: start: 20101026
  9. AVASTIN [Suspect]
     Active Substance: BEVACIZUMAB
     Indication: BREAST CANCER METASTATIC
     Route: 042
     Dates: start: 20100810

REACTIONS (4)
  - Asthenia [Recovered/Resolved]
  - Disorientation [Recovered/Resolved]
  - Upper respiratory tract infection [Recovered/Resolved]
  - Asthenia [Recovered/Resolved]

NARRATIVE: CASE EVENT DATE: 20101109
